FAERS Safety Report 11122139 (Version 1)
Quarter: 2015Q2

REPORT INFORMATION
  Report Type: Spontaneous
  Country: US (occurrence: US)
  Receive Date: 20150519
  Receipt Date: 20150519
  Transmission Date: 20150821
  Serious: Yes (Disabling, Other)
  Sender: FDA-Public Use
  Company Number: US-009507513-1205USA02109

PATIENT
  Sex: Female

DRUGS (4)
  1. IBANDRONATE SODIUM. [Suspect]
     Active Substance: IBANDRONATE SODIUM
     Dates: start: 2002, end: 2010
  2. FOSAMAX [Suspect]
     Active Substance: ALENDRONATE SODIUM
     Indication: OSTEOPOROSIS
     Route: 048
     Dates: start: 2002, end: 2010
  3. BONIVA [Suspect]
     Active Substance: IBANDRONATE SODIUM
     Dates: start: 2002, end: 2010
  4. FOSAMAX [Suspect]
     Active Substance: ALENDRONATE SODIUM
     Indication: OSTEOPOROSIS
     Route: 048
     Dates: start: 2002, end: 2010

REACTIONS (18)
  - Hypersensitivity [Unknown]
  - Cerumen impaction [Recovered/Resolved]
  - Gingivitis [Unknown]
  - Blood calcium increased [Unknown]
  - Hypoacusis [Unknown]
  - Skin lesion [Unknown]
  - Loss of libido [Unknown]
  - Neck pain [Unknown]
  - Glaucoma [Unknown]
  - Femur fracture [Not Recovered/Not Resolved]
  - Bite [Unknown]
  - Irritability [Unknown]
  - Periodontal disease [Unknown]
  - Vulvovaginal dryness [Unknown]
  - Pain in extremity [Unknown]
  - Dyspareunia [Unknown]
  - Arthralgia [Unknown]
  - Dyspepsia [Unknown]

NARRATIVE: CASE EVENT DATE: 20100406
